FAERS Safety Report 7668092-4 (Version None)
Quarter: 2011Q3

REPORT INFORMATION
  Report Type: 
  Country: None (occurrence: None)
  Receive Date: 20110808
  Receipt Date: 20110726
  Transmission Date: 20111222
  Serious: Yes (Other)
  Sender: FDA-Public Use
  Company Number: US-JNJFOC-20110711818

PATIENT
  Sex: Female
  Weight: 63.5 kg

DRUGS (3)
  1. BENTYL [Concomitant]
     Indication: PAIN
     Dosage: 20MG/TABLET/20MG/ 4 A DAY AS NEEDED
     Route: 048
     Dates: start: 20080101
  2. REMICADE [Suspect]
     Indication: CROHN'S DISEASE
     Route: 042
  3. BISOPROLOL FUMARATE [Concomitant]
     Indication: BLOOD PRESSURE
     Route: 048

REACTIONS (8)
  - DRY SKIN [None]
  - ACNE [None]
  - PRURITUS [None]
  - SKIN WRINKLING [None]
  - OEDEMA PERIPHERAL [None]
  - SKIN ULCER [None]
  - SCAR [None]
  - DRUG INEFFECTIVE [None]
